FAERS Safety Report 14853412 (Version 4)
Quarter: 2019Q1

REPORT INFORMATION
  Report Type: Report from Study
  Country: None (occurrence: AU)
  Receive Date: 20180507
  Receipt Date: 20190128
  Transmission Date: 20190417
  Serious: Yes (Hospitalization, Other)
  Sender: FDA-Public Use
  Company Number: AU-ABBVIE-18K-008-2345011-00

PATIENT
  Age: 34 Year
  Sex: Female
  Weight: 91 kg

DRUGS (1)
  1. HUMIRA [Suspect]
     Active Substance: ADALIMUMAB
     Indication: PRODUCT USED FOR UNKNOWN INDICATION
     Route: 058

REACTIONS (10)
  - Crohn^s disease [Unknown]
  - Drug specific antibody absent [Unknown]
  - Exposure during pregnancy [Unknown]
  - Pouchitis [Unknown]
  - Premature rupture of membranes [Unknown]
  - Premature delivery [Recovered/Resolved]
  - Live birth [Unknown]
  - Enteritis [Unknown]
  - Drug level decreased [Unknown]
  - C-reactive protein increased [Unknown]

NARRATIVE: CASE EVENT DATE: 201802
